FAERS Safety Report 7070974-1 (Version None)
Quarter: 2010Q4

REPORT INFORMATION
  Report Type: 
  Country: None (occurrence: None)
  Receive Date: 20101029
  Receipt Date: 20101021
  Transmission Date: 20110411
  Serious: Yes (Other)
  Sender: FDA-Public Use
  Company Number: JP-JNJFOC-20090708505

PATIENT
  Sex: Female
  Weight: 50 kg

DRUGS (17)
  1. DOXORUBICIN HCL [Suspect]
     Indication: OVARIAN CANCER RECURRENT
     Dosage: CYCLE 4
     Route: 042
  2. DOXORUBICIN HCL [Suspect]
     Route: 042
  3. DOXORUBICIN HCL [Suspect]
     Route: 042
  4. DOXORUBICIN HCL [Suspect]
     Dosage: CYCLE 6
     Route: 042
  5. DOXORUBICIN HCL [Suspect]
     Dosage: CYCLE 5
     Route: 042
  6. DOXORUBICIN HCL [Suspect]
     Route: 042
  7. DOXORUBICIN HCL [Suspect]
     Dosage: CYCLE 3
     Route: 042
  8. DOXORUBICIN HCL [Suspect]
     Dosage: CYCLE 2
     Route: 042
  9. DOXORUBICIN HCL [Suspect]
     Dosage: CYCLE 1
     Route: 042
  10. DOXORUBICIN HCL [Suspect]
     Route: 042
  11. DOXORUBICIN HCL [Suspect]
     Route: 042
  12. PYDOXAL [Concomitant]
     Indication: PROPHYLAXIS
     Route: 048
  13. HACHIAZULE [Concomitant]
     Indication: STOMATITIS
     Route: 049
  14. ANTEBATE [Concomitant]
     Indication: PROPHYLAXIS
     Route: 061
  15. ANTEBATE [Concomitant]
     Indication: RASH
     Route: 061
  16. MAGMITT [Concomitant]
     Indication: CONSTIPATION
     Route: 048
  17. RIZABEN [Concomitant]
     Indication: SEASONAL ALLERGY
     Route: 031

REACTIONS (5)
  - INFUSION RELATED REACTION [None]
  - INTERSTITIAL LUNG DISEASE [None]
  - PALMAR-PLANTAR ERYTHRODYSAESTHESIA SYNDROME [None]
  - RASH [None]
  - STOMATITIS [None]
